FAERS Safety Report 15988870 (Version 3)
Quarter: 2020Q1

REPORT INFORMATION
  Report Type: Report from Study
  Country: US (occurrence: US)
  Receive Date: 20190221
  Receipt Date: 20200321
  Transmission Date: 20200409
  Serious: Yes (Other)
  Sender: FDA-Public Use
  Company Number: PHEH2019US007496

PATIENT
  Sex: Male
  Weight: 77 kg

DRUGS (3)
  1. KYMRIAH [Suspect]
     Active Substance: TISAGENLECLEUCEL
     Indication: B-CELL TYPE ACUTE LEUKAEMIA
     Dosage: 22 ML, ONCE/SINGLE
     Route: 041
     Dates: start: 20190204
  2. CYCLOPHOSPHAMIDE. [Concomitant]
     Active Substance: CYCLOPHOSPHAMIDE
     Indication: CHEMOTHERAPY
     Dosage: UNK
     Route: 065
  3. FLUDARABINE [Concomitant]
     Active Substance: FLUDARABINE PHOSPHATE
     Indication: CHEMOTHERAPY
     Dosage: UNK
     Route: 065

REACTIONS (15)
  - Cytokine release syndrome [Recovered/Resolved]
  - Cytopenia [Unknown]
  - Staphylococcal infection [Unknown]
  - Lymphocyte count decreased [Unknown]
  - Haemoglobin decreased [Unknown]
  - Acute lymphocytic leukaemia recurrent [Unknown]
  - Aphasia [Unknown]
  - White blood cell count decreased [Unknown]
  - Neurotoxicity [Recovered/Resolved]
  - Pyrexia [Unknown]
  - Motor dysfunction [Unknown]
  - Haematocrit decreased [Unknown]
  - Malignant neoplasm progression [Unknown]
  - Tremor [Unknown]
  - Neutrophil count decreased [Unknown]
